FAERS Safety Report 4749411-5 (Version None)
Quarter: 2005Q3

REPORT INFORMATION
  Report Type: 
  Country: None (occurrence: None)
  Receive Date: 20050819
  Receipt Date: 20050428
  Transmission Date: 20060218
  Serious: Yes (Hospitalization)
  Sender: FDA-Public Use
  Company Number: US-MERCK-0505USA00103

PATIENT
  Age: 39 Year
  Sex: Female
  Weight: 100 kg

DRUGS (7)
  1. VIOXX [Suspect]
     Indication: RHEUMATOID ARTHRITIS
     Route: 048
     Dates: start: 19991221, end: 20030801
  2. ZESTRIL [Concomitant]
     Indication: RENAL DISORDER
     Route: 048
     Dates: start: 19940101
  3. TYLENOL [Concomitant]
     Indication: ARTHRALGIA
     Route: 048
     Dates: start: 19930101, end: 20050101
  4. INSULIN [Concomitant]
     Indication: DIABETES MELLITUS
     Route: 058
  5. SYNTHROID [Concomitant]
     Indication: HYPOTHYROIDISM
     Route: 048
  6. LESCOL [Concomitant]
     Indication: BLOOD CHOLESTEROL INCREASED
     Route: 048
     Dates: start: 19990101, end: 20030101
  7. HEPARIN [Suspect]
     Route: 058
     Dates: start: 20030801

REACTIONS (14)
  - BLOOD CREATININE INCREASED [None]
  - CELLULITIS [None]
  - CHEST PAIN [None]
  - CORONARY ARTERY DISEASE [None]
  - DEPRESSION [None]
  - GASTRIC INFECTION [None]
  - HAEMATOCRIT DECREASED [None]
  - HYPOTENSION [None]
  - MYOCARDIAL INFARCTION [None]
  - NEPHROLITHIASIS [None]
  - PLATELET COUNT DECREASED [None]
  - PLEURAL EFFUSION [None]
  - POSTOPERATIVE INFECTION [None]
  - SARCOMA UTERUS [None]
